FAERS Safety Report 11326570 (Version 2)
Quarter: 2015Q3

REPORT INFORMATION
  Report Type: Report from Study
  Country: US (occurrence: US)
  Receive Date: 20150731
  Receipt Date: 20150807
  Transmission Date: 20151125
  Serious: Yes (Death, Hospitalization)
  Sender: FDA-Public Use
  Company Number: US-BIOGENIDEC-2015BI102126

PATIENT
  Age: 55 Year
  Sex: Female

DRUGS (1)
  1. TYSABRI [Suspect]
     Active Substance: NATALIZUMAB
     Indication: MULTIPLE SCLEROSIS
     Route: 042
     Dates: start: 20130813, end: 20141209

REACTIONS (5)
  - Death [Fatal]
  - General physical health deterioration [Unknown]
  - Acute hepatic failure [Unknown]
  - Respiratory failure [Unknown]
  - Renal failure [Unknown]

NARRATIVE: CASE EVENT DATE: 20150605
